FAERS Safety Report 4407728-8 (Version None)
Quarter: 2004Q3

REPORT INFORMATION
  Report Type: 
  Country: None (occurrence: None)
  Receive Date: 20040722
  Receipt Date: 20040715
  Transmission Date: 20050211
  Serious: Yes (Other)
  Sender: FDA-Public Use
  Company Number: A-US2004-05911

PATIENT
  Age: 51 Year
  Sex: Female

DRUGS (6)
  1. TRACLEER [Suspect]
     Indication: RAYNAUD'S PHENOMENON
     Dosage: SEE IMAGE,ORAL
     Route: 048
     Dates: start: 20040409, end: 20040422
  2. TRACLEER [Suspect]
     Indication: RAYNAUD'S PHENOMENON
     Dosage: SEE IMAGE,ORAL
     Route: 048
     Dates: start: 20040428, end: 20040428
  3. CIPRO [Suspect]
     Indication: INFECTION
     Dosage: ORAL
     Route: 048
     Dates: start: 20040401, end: 20040422
  4. NIFEDIPINE [Concomitant]
  5. IMURAN [Concomitant]
  6. PREDNISONE (PREDNISONE) [Concomitant]

REACTIONS (1)
  - HYPERSENSITIVITY [None]
